FAERS Safety Report 14654285 (Version 2)
Quarter: 2018Q2

REPORT INFORMATION
  Report Type: Report from Study
  Country: None (occurrence: BR)
  Receive Date: 20180319
  Receipt Date: 20180402
  Transmission Date: 20180711
  Serious: Yes (Other)
  Sender: FDA-Public Use
  Company Number: BR-ABBVIE-18K-020-2289242-00

PATIENT
  Sex: Male
  Weight: 74 kg

DRUGS (3)
  1. LOSARTAN. [Concomitant]
     Active Substance: LOSARTAN
     Indication: HYPERTENSION
  2. BESILAPIN [Concomitant]
     Indication: HYPERTENSION
  3. HUMIRA [Suspect]
     Active Substance: ADALIMUMAB
     Indication: CROHN^S DISEASE
     Route: 058
     Dates: start: 20141201, end: 201802

REACTIONS (7)
  - Anal stenosis [Recovering/Resolving]
  - Pyrexia [Recovered/Resolved]
  - Anal fistula [Recovering/Resolving]
  - Crohn^s disease [Unknown]
  - Gastritis [Recovered/Resolved]
  - Post procedural discharge [Unknown]
  - Rectal ulcer [Recovering/Resolving]

NARRATIVE: CASE EVENT DATE: 2015
